FAERS Safety Report 18581034 (Version 1)
Quarter: 2020Q4

REPORT INFORMATION
  Report Type: Spontaneous
  Country: CN (occurrence: CN)
  Receive Date: 20201204
  Receipt Date: 20201204
  Transmission Date: 20210114
  Serious: Yes (Hospitalization)
  Sender: FDA-Public Use
  Company Number: CN-STRIDES ARCOLAB LIMITED-2020SP015081

PATIENT
  Age: 48 Year
  Sex: Male

DRUGS (7)
  1. TACROLIMUS. [Suspect]
     Active Substance: TACROLIMUS
     Indication: RENAL TRANSPLANT
     Dosage: UNK
     Route: 065
  2. PREDNISOLONE. [Suspect]
     Active Substance: PREDNISOLONE
     Indication: RENAL TRANSPLANT
     Dosage: UNK
     Route: 065
  3. CYCLOSPORINE. [Interacting]
     Active Substance: CYCLOSPORINE
     Indication: RENAL TRANSPLANT
     Dosage: UNK
     Route: 065
  4. TIGECYCLINE. [Interacting]
     Active Substance: TIGECYCLINE
     Indication: ENTEROCOCCAL INFECTION
  5. MYCOPHENOLATE MOFETIL. [Suspect]
     Active Substance: MYCOPHENOLATE MOFETIL
     Indication: RENAL TRANSPLANT
     Dosage: UNK
     Route: 065
  6. TIGECYCLINE. [Interacting]
     Active Substance: TIGECYCLINE
     Indication: KLEBSIELLA INFECTION
     Dosage: 50 MILLIGRAM, EVERY 12 HRS
     Route: 041
  7. CEFOPERAZONE;SULBACTAM [Concomitant]
     Active Substance: CEFOPERAZONE\SULBACTAM
     Indication: ANTIBIOTIC PROPHYLAXIS
     Dosage: UNK
     Route: 065

REACTIONS (14)
  - Pyrexia [Recovered/Resolved]
  - Dyspnoea [Unknown]
  - Chills [Unknown]
  - Transplant rejection [Unknown]
  - Lung opacity [Recovered/Resolved]
  - Pneumonia klebsiella [Recovered/Resolved]
  - Diarrhoea [Unknown]
  - Nephropathy toxic [Recovered/Resolved]
  - Abdominal pain [Recovered/Resolved]
  - Pneumonia [Recovered/Resolved]
  - Drug interaction [Unknown]
  - Vomiting [Unknown]
  - Enterococcal infection [Unknown]
  - Pancreatitis [Unknown]
